FAERS Safety Report 6227405-0 (Version None)
Quarter: 2009Q2

REPORT INFORMATION
  Report Type: 
  Country: None (occurrence: None)
  Receive Date: 20090610
  Receipt Date: 20090610
  Transmission Date: 20091009
  Serious: Yes (Life-Threatening, Hospitalization, Other)
  Sender: FDA-Public Use
  Company Number: None

PATIENT
  Age: 65 Year
  Sex: Female
  Weight: 56.6996 kg

DRUGS (1)
  1. CRESTOR [Suspect]
     Indication: BLOOD CHOLESTEROL INCREASED
     Dosage: ONE DAILY DAILY PO
     Route: 048
     Dates: start: 20090318, end: 20090327

REACTIONS (4)
  - AMNESIA [None]
  - BLOOD DISORDER [None]
  - INFECTION [None]
  - PANCREATITIS [None]
